FAERS Safety Report 11859034 (Version 1)
Quarter: 2015Q4

REPORT INFORMATION
  Report Type: Spontaneous
  Country: US (occurrence: US)
  Receive Date: 20151222
  Receipt Date: 20151222
  Transmission Date: 20160305
  Serious: Yes (Hospitalization)
  Sender: FDA-Public Use
  Company Number: US-WEST-WARD PHARMACEUTICALS CORP.-US-H14001-15-02169

PATIENT
  Age: 53 Year
  Sex: Male

DRUGS (5)
  1. MORPHINE [Suspect]
     Active Substance: MORPHINE
     Indication: ANALGESIC THERAPY
     Dosage: MAX RATE: 6 MG/HR
     Route: 065
  2. KETAMINE [Concomitant]
     Active Substance: KETAMINE
     Indication: PRODUCT USED FOR UNKNOWN INDICATION
     Dosage: STARTED AT 1 MCG/KG/MIN (4.2 MG/HR) AND REACHED A MAXIMUM RATE OF 10 MCG/KG/MIN (42 MG/HR)
     Route: 041
  3. LORAZEPAM. [Suspect]
     Active Substance: LORAZEPAM
     Indication: PRODUCT USED FOR UNKNOWN INDICATION
     Dosage: MAX RATE: 10 MG/HR
     Route: 065
  4. PROPOFOL. [Suspect]
     Active Substance: PROPOFOL
     Indication: SEDATION
     Dosage: MAX RATE: 15 MCG/KG/MIN
     Route: 065
  5. HYDROMORPHONE [Suspect]
     Active Substance: HYDROMORPHONE
     Indication: PRODUCT USED FOR UNKNOWN INDICATION
     Dosage: MAX RATE: 8 MG/HR
     Route: 065

REACTIONS (4)
  - Agitation [Unknown]
  - Oxygen saturation decreased [Unknown]
  - Acute kidney injury [Unknown]
  - Pancreatitis [Unknown]
